FAERS Safety Report 17203261 (Version 7)
Quarter: 2021Q3

REPORT INFORMATION
  Report Type: Report from Study
  Country: US (occurrence: US)
  Receive Date: 20191226
  Receipt Date: 20210805
  Transmission Date: 20211014
  Serious: Yes (Hospitalization)
  Sender: FDA-Public Use
  Company Number: US-SHIRE-US201944496

PATIENT
  Sex: Female
  Weight: 45 kg

DRUGS (13)
  1. TEDUGLUTIDE [Suspect]
     Active Substance: TEDUGLUTIDE
     Indication: SHORT-BOWEL SYNDROME
     Dosage: 2.32 MILLIGRAM, QD
     Route: 058
     Dates: start: 201404
  2. TEDUGLUTIDE [Suspect]
     Active Substance: TEDUGLUTIDE
     Dosage: 2.32 MILLIGRAM, QD
     Route: 058
     Dates: start: 20151109
  3. TEDUGLUTIDE [Suspect]
     Active Substance: TEDUGLUTIDE
     Dosage: 2.32 MILLIGRAM, QD
     Route: 058
     Dates: start: 20151109
  4. TEDUGLUTIDE [Suspect]
     Active Substance: TEDUGLUTIDE
     Dosage: 2.32 MILLIGRAM, QD
     Route: 058
     Dates: start: 201404
  5. METHOTREXATE [METHOTREXATE SODIUM] [Concomitant]
     Active Substance: METHOTREXATE SODIUM
     Indication: CROHN^S DISEASE
     Dosage: 15 MILLIGRAM, 1/WEEK
     Route: 065
     Dates: start: 201807
  6. TEDUGLUTIDE [Suspect]
     Active Substance: TEDUGLUTIDE
     Dosage: 2.32 MILLIGRAM, QD
     Route: 058
     Dates: start: 201404
  7. TEDUGLUTIDE [Suspect]
     Active Substance: TEDUGLUTIDE
     Dosage: 2.32 MILLIGRAM, QD
     Route: 058
     Dates: start: 201404
  8. TEDUGLUTIDE [Suspect]
     Active Substance: TEDUGLUTIDE
     Indication: SHORT-BOWEL SYNDROME
     Dosage: 2.32 MILLIGRAM, QD
     Route: 058
     Dates: start: 201404
  9. TEDUGLUTIDE [Suspect]
     Active Substance: TEDUGLUTIDE
     Indication: SHORT-BOWEL SYNDROME
     Dosage: 2.32 MILLIGRAM, QD
     Route: 058
     Dates: start: 201404
  10. TEDUGLUTIDE [Suspect]
     Active Substance: TEDUGLUTIDE
     Indication: SHORT-BOWEL SYNDROME
     Dosage: 2.32 MILLIGRAM, QD
     Route: 058
     Dates: start: 201404
  11. TEDUGLUTIDE [Suspect]
     Active Substance: TEDUGLUTIDE
     Dosage: 2.32 MILLIGRAM, QD
     Route: 058
     Dates: start: 20151109
  12. TEDUGLUTIDE [Suspect]
     Active Substance: TEDUGLUTIDE
     Dosage: 2.32 MILLIGRAM, QD
     Route: 058
     Dates: start: 20151109
  13. TEDUGLUTIDE [Suspect]
     Active Substance: TEDUGLUTIDE
     Dosage: 2.32 MILLIGRAM, QD
     Route: 058
     Dates: start: 201404

REACTIONS (2)
  - Syringe issue [Unknown]
  - Oropharyngeal dysplasia [Unknown]

NARRATIVE: CASE EVENT DATE: 2014
